FAERS Safety Report 20033090 (Version 1)
Quarter: 2021Q4

REPORT INFORMATION
  Report Type: Report from Study
  Country: BR (occurrence: BR)
  Receive Date: 20211104
  Receipt Date: 20211104
  Transmission Date: 20220303
  Serious: Yes (Hospitalization, Other)
  Sender: FDA-Public Use
  Company Number: BR-NOVARTISPH-NVSC2021BR250085

PATIENT
  Age: 48 Year
  Sex: Male

DRUGS (2)
  1. DIOVAN HCT [Suspect]
     Active Substance: HYDROCHLOROTHIAZIDE\VALSARTAN
     Indication: Product used for unknown indication
     Dosage: 80, CONTINOUS (BOX WITH 28 TABLETS), STARTED 10 YEARS AGO AND STOP DATE UNABLE TO INFORM
     Route: 065
  2. DIOVAN HCT [Suspect]
     Active Substance: HYDROCHLOROTHIAZIDE\VALSARTAN
     Dosage: 160, CONTINOUS (BOX WITH 28 TABLETS), STARTED 8 YEARS AGO AND STOPPED 7 YEARS AGO
     Route: 065

REACTIONS (15)
  - Craniocerebral injury [Recovered/Resolved]
  - Spinal cord injury [Recovered/Resolved]
  - Diabetes mellitus [Not Recovered/Not Resolved]
  - Spinal fracture [Recovered/Resolved]
  - Cerebral thrombosis [Recovered/Resolved]
  - Weight increased [Recovered/Resolved]
  - Blood pressure increased [Recovered/Resolved]
  - Overweight [Recovered/Resolved]
  - Obesity [Recovered/Resolved]
  - Fall [Recovered/Resolved]
  - Head injury [Recovered/Resolved]
  - Back injury [Recovered/Resolved]
  - Blood pressure fluctuation [Not Recovered/Not Resolved]
  - Hypertension [Not Recovered/Not Resolved]
  - Drug ineffective [Unknown]

NARRATIVE: CASE EVENT DATE: 20140907
